FAERS Safety Report 13609194 (Version 1)
Quarter: 2017Q2

REPORT INFORMATION
  Report Type: Spontaneous
  Country: CZ (occurrence: CZ)
  Receive Date: 20170602
  Receipt Date: 20170602
  Transmission Date: 20170830
  Serious: Yes (Hospitalization, Other)
  Sender: FDA-Public Use
  Company Number: CZ-SA-2017SA097083

PATIENT
  Age: 64 Year
  Sex: Female

DRUGS (2)
  1. ALEMTUZUMAB [Suspect]
     Active Substance: ALEMTUZUMAB
     Indication: CHRONIC LYMPHOCYTIC LEUKAEMIA
     Route: 065
     Dates: start: 201303, end: 201305
  2. ALEMTUZUMAB [Suspect]
     Active Substance: ALEMTUZUMAB
     Indication: CHRONIC LYMPHOCYTIC LEUKAEMIA
     Route: 065
     Dates: start: 201401, end: 201410

REACTIONS (5)
  - Peritonitis [Unknown]
  - Disease progression [Unknown]
  - Febrile neutropenia [Recovered/Resolved]
  - Abdominal lymphadenopathy [Unknown]
  - Anaemia [Unknown]

NARRATIVE: CASE EVENT DATE: 2013
